FAERS Safety Report 19051268 (Version 1)
Quarter: 2021Q1

REPORT INFORMATION
  Report Type: Spontaneous
  Country: US (occurrence: US)
  Receive Date: 20210322
  Receipt Date: 20210322
  Transmission Date: 20210420
  Serious: Yes (Life-Threatening, Disabling, Other)
  Sender: FDA-Public Use
  Company Number: None

PATIENT
  Age: 66 Year
  Sex: Male
  Weight: 86.18 kg

DRUGS (12)
  1. FLUOXETINE HCL 10MG CAP [Suspect]
     Active Substance: FLUOXETINE HYDROCHLORIDE
     Indication: DEPRESSION
     Route: 048
     Dates: start: 20200302
  2. LOSARTAN. [Suspect]
     Active Substance: LOSARTAN
     Indication: HYPERTENSION
     Dosage: ?          QUANTITY:0.5 DF DOSAGE FORM;?
     Route: 048
     Dates: start: 20191022
  3. ENBREL [Suspect]
     Active Substance: ETANERCEPT
     Indication: PSORIASIS
     Dosage: ?          QUANTITY:1 DF DOSAGE FORM;?
     Route: 058
     Dates: start: 20200306
  4. NIFEDIPINE. [Suspect]
     Active Substance: NIFEDIPINE
     Dosage: ?          QUANTITY:1 DF DOSAGE FORM;?
     Route: 048
     Dates: start: 20181205
  5. COSENTYX [Suspect]
     Active Substance: SECUKINUMAB
     Indication: PSORIASIS
     Dosage: ?          QUANTITY:2 DF DOSAGE FORM;?
     Route: 058
     Dates: start: 20200323
  6. LABETALOL 200MG TAB [Suspect]
     Active Substance: LABETALOL HYDROCHLORIDE
     Indication: HYPERTENSION
     Route: 048
     Dates: start: 20180518
  7. SYNTHROID [Concomitant]
     Active Substance: LEVOTHYROXINE SODIUM
  8. CLONIDINE. [Suspect]
     Active Substance: CLONIDINE
     Indication: HYPERTENSION
     Dosage: ?          QUANTITY:0.01 DF DOSAGE FORM;?
     Dates: start: 20190330
  9. LISINOPRIL 20 MG [Suspect]
     Active Substance: LISINOPRIL
     Indication: HYPERTENSION
     Dosage: ?          QUANTITY:0.5 DF DOSAGE FORM;?
     Route: 048
     Dates: start: 20200723
  10. SERTRALINE HCL 50MG [Suspect]
     Active Substance: SERTRALINE HYDROCHLORIDE
     Indication: DEPRESSION
     Dosage: ?          QUANTITY:0.5 DF DOSAGE FORM;?
     Dates: start: 20181113
  11. AMLODIPINE BESYLATE. [Suspect]
     Active Substance: AMLODIPINE BESYLATE
     Indication: HYPERTENSION
     Dosage: ?          QUANTITY:10 MG MILLIGRAM(S);?
     Route: 048
     Dates: start: 20180515
  12. FOLEY INDWELLNG [Concomitant]

REACTIONS (31)
  - Vomiting [None]
  - Vision blurred [None]
  - Nausea [None]
  - Weight increased [None]
  - Bone pain [None]
  - Renal pain [None]
  - Device occlusion [None]
  - Chest pain [None]
  - Cardiac disorder [None]
  - Drug hypersensitivity [None]
  - Influenza like illness [None]
  - Blood pressure increased [None]
  - Urinary retention [None]
  - Dizziness [None]
  - Headache [None]
  - Urine output increased [None]
  - Chest discomfort [None]
  - Pain [None]
  - Mood swings [None]
  - Injection site reaction [None]
  - Hypoaesthesia [None]
  - Anxiety [None]
  - Poisoning [None]
  - Abdominal distension [None]
  - Product taste abnormal [None]
  - Therapeutic response decreased [None]
  - Muscle spasms [None]
  - Bladder pain [None]
  - Depression suicidal [None]
  - Drug interaction [None]
  - Product substitution issue [None]
